FAERS Safety Report 23428240 (Version 2)
Quarter: 2024Q3

REPORT INFORMATION
  Report Type: Spontaneous
  Country: US (occurrence: US)
  Receive Date: 20240122
  Receipt Date: 20240718
  Transmission Date: 20241017
  Serious: No
  Sender: PFIZER
  Company Number: US-PFIZER INC-202400015934

PATIENT
  Age: 65 Year
  Sex: Male

DRUGS (1)
  1. TESTOSTERONE CYPIONATE [Suspect]
     Active Substance: TESTOSTERONE CYPIONATE
     Dosage: 0.4 ML, WEEKLY
     Route: 058

REACTIONS (4)
  - Injection site inflammation [Unknown]
  - Inflammation [Unknown]
  - Injection site deformation [Not Recovered/Not Resolved]
  - Off label use [Unknown]
